FAERS Safety Report 5533421-4 (Version None)
Quarter: 2007Q4

REPORT INFORMATION
  Report Type: 
  Country: None (occurrence: None)
  Receive Date: 20071204
  Receipt Date: 20071127
  Transmission Date: 20080405
  Serious: Yes (Other)
  Sender: FDA-Public Use
  Company Number: PHBS2007CN13112

PATIENT
  Age: 25 Year
  Sex: Female

DRUGS (1)
  1. SEBIVO [Suspect]
     Indication: HEPATITIS B
     Dosage: 600 MG, QD
     Route: 048
     Dates: start: 20070501

REACTIONS (4)
  - BACK PAIN [None]
  - HYDRONEPHROSIS [None]
  - IN VITRO FERTILISATION [None]
  - PREGNANCY TEST NEGATIVE [None]
